FAERS Safety Report 9459975 (Version 1)
Quarter: 2013Q3

REPORT INFORMATION
  Report Type: Report from Study
  Country: CA (occurrence: CA)
  Receive Date: 20130815
  Receipt Date: 20130815
  Transmission Date: 20140515
  Serious: Yes (Other)
  Sender: FDA-Public Use
  Company Number: PHHY2013CA088036

PATIENT
  Age: 72 Year
  Sex: Female

DRUGS (1)
  1. ACLASTA [Suspect]
     Indication: OSTEOPOROSIS
     Dosage: UNK UKN, UNK
     Route: 042
     Dates: start: 20130725

REACTIONS (5)
  - Myocardial infarction [Unknown]
  - Chest pain [Unknown]
  - Nasopharyngitis [Unknown]
  - Influenza like illness [Unknown]
  - Musculoskeletal pain [Unknown]
